FAERS Safety Report 6969449-7 (Version None)
Quarter: 2010Q3

REPORT INFORMATION
  Report Type: 
  Country: None (occurrence: None)
  Receive Date: 20100902
  Receipt Date: 20100827
  Transmission Date: 20110219
  Serious: Yes (Disabling, Other)
  Sender: FDA-Public Use
  Company Number: 2010SP028818

PATIENT
  Age: 27 Year
  Sex: Female

DRUGS (2)
  1. DESLORATADINE AND PSEUDOEPHEDRINE SULFATE [Suspect]
     Indication: EAR DISORDER
     Dosage: PO
     Route: 048
     Dates: start: 20100501, end: 20100507
  2. HELIPAK (CON.) [Concomitant]

REACTIONS (10)
  - DEPRESSION [None]
  - EAR DISCOMFORT [None]
  - EAR PAIN [None]
  - HYPERACUSIS [None]
  - HYPOAESTHESIA [None]
  - INNER EAR DISORDER [None]
  - NEURALGIA [None]
  - PRODUCT QUALITY ISSUE [None]
  - QUALITY OF LIFE DECREASED [None]
  - TINNITUS [None]
